FAERS Safety Report 7638797-X (Version None)
Quarter: 2011Q3

REPORT INFORMATION
  Report Type: 
  Country: None (occurrence: None)
  Receive Date: 20110721
  Receipt Date: 20110715
  Transmission Date: 20111222
  Serious: Yes (Death)
  Sender: FDA-Public Use
  Company Number: DKLU1071799

PATIENT
  Age: 6 Year
  Sex: Female
  Weight: 22 kg

DRUGS (12)
  1. PREVACID [Concomitant]
  2. SABRIL [Suspect]
     Indication: EPILEPSY
     Dosage: 500 MG MILLIGRAM(S), 2 IN 1 D, ORAL 2000 MG MILLIGRAM(S), 1 IN 1 D, ORAL
     Route: 048
     Dates: start: 20110101
  3. GLYCOPYROLATE (GLYCOPYRONIUM) [Concomitant]
  4. ALBUTEROL (SALBUTAMOL) (0.08%) [Concomitant]
  5. KEPPRA [Concomitant]
  6. DILANTIN [Concomitant]
  7. DEPAKOTE [Concomitant]
  8. DEPAKINE (VALPROIC ACID) (50 MG/ML) [Concomitant]
  9. RANITIDINE [Concomitant]
  10. MIRALAX [Concomitant]
  11. KLONOPIN [Concomitant]
  12. TRILEPTAL [Concomitant]

REACTIONS (1)
  - DEATH [None]
